FAERS Safety Report 7610984-6 (Version None)
Quarter: 2011Q3

REPORT INFORMATION
  Report Type: 
  Country: None (occurrence: None)
  Receive Date: 20110715
  Receipt Date: 20110712
  Transmission Date: 20111222
  Serious: Yes (Life-Threatening, Other)
  Sender: FDA-Public Use
  Company Number: JP-PFIZER INC-2011151862

PATIENT
  Age: 77 Year
  Sex: Male

DRUGS (3)
  1. METFORMIN HCL [Concomitant]
     Dosage: 250 MG/DAY
     Route: 048
  2. SITAGLIPTIN PHOSPHATE [Concomitant]
     Dosage: 50 MG/DAY
  3. LYRICA [Suspect]
     Indication: POST HERPETIC NEURALGIA
     Dosage: 150 MG/DAY
     Route: 048
     Dates: start: 20110620, end: 20110703

REACTIONS (1)
  - VENTRICULAR EXTRASYSTOLES [None]
